FAERS Safety Report 20262612 (Version 1)
Quarter: 2021Q4

REPORT INFORMATION
  Report Type: Spontaneous
  Country: US (occurrence: US)
  Receive Date: 20211231
  Receipt Date: 20211231
  Transmission Date: 20220303
  Serious: No
  Sender: FDA-Public Use
  Company Number: US-drreddys-SPO/USA/21/0145196

PATIENT
  Age: 20 Year
  Sex: Male

DRUGS (1)
  1. ISOTRETINOIN [Suspect]
     Active Substance: ISOTRETINOIN
     Indication: Product used for unknown indication
     Dosage: RMA ISSUE: 01 OCTOBER 2021 12:00:00 AM; RMA ISSUE: 01 NOVEMBER 2021 12:00:00 AM

REACTIONS (2)
  - Drug ineffective [Unknown]
  - Product quality issue [Unknown]
